FAERS Safety Report 18678727 (Version 5)
Quarter: 2021Q1

REPORT INFORMATION
  Report Type: Spontaneous
  Country: PT (occurrence: PT)
  Receive Date: 20201229
  Receipt Date: 20210225
  Transmission Date: 20210419
  Serious: Yes (Other)
  Sender: FDA-Public Use
  Company Number: PT-NOVOPROD-771701

PATIENT
  Age: 45 Year
  Sex: Female
  Weight: 106 kg

DRUGS (9)
  1. SAXENDA [Suspect]
     Active Substance: LIRAGLUTIDE
     Dosage: 1.2 MG, QD (SECOND WEEK)
     Route: 058
  2. PRETERAX [INDAPAMIDE;PERINDOPRIL ARGININE] [Concomitant]
     Indication: HYPERTENSION
     Dosage: UNK
     Route: 058
     Dates: start: 20201202
  3. BISOPROLOL [Concomitant]
     Active Substance: BISOPROLOL
     Indication: PRODUCT USED FOR UNKNOWN INDICATION
     Dosage: UNK
     Route: 065
     Dates: start: 20201202
  4. CINNARIZINE [Concomitant]
     Active Substance: CINNARIZINE
     Indication: PRODUCT USED FOR UNKNOWN INDICATION
     Route: 065
  5. SAXENDA [Suspect]
     Active Substance: LIRAGLUTIDE
     Dosage: 1.8 MG, QD (THIRD WEEK)
     Route: 058
     Dates: end: 201905
  6. SAXENDA [Suspect]
     Active Substance: LIRAGLUTIDE
     Indication: OBESITY
     Dosage: 0.6 MG, QD (FIRST WEEK)
     Route: 058
     Dates: start: 20190409
  7. LERCANIDIPINE [Concomitant]
     Active Substance: LERCANIDIPINE
     Indication: PRODUCT USED FOR UNKNOWN INDICATION
     Dosage: UNK
     Route: 065
     Dates: start: 20201202
  8. SAXENDA [Suspect]
     Active Substance: LIRAGLUTIDE
     Dosage: UNK (RESTARTED AT LOW DOSE)
     Route: 058
     Dates: start: 20200309, end: 202003
  9. CONCOR [Concomitant]
     Active Substance: BISOPROLOL FUMARATE
     Indication: HYPERTENSION
     Dosage: UNK
     Route: 048
     Dates: start: 201903

REACTIONS (6)
  - Alopecia [Recovering/Resolving]
  - Seborrhoeic dermatitis [Recovering/Resolving]
  - Weight loss poor [Unknown]
  - Wound secretion [Recovering/Resolving]
  - Rash macular [Recovering/Resolving]
  - Skin lesion [Recovering/Resolving]

NARRATIVE: CASE EVENT DATE: 201905
